FAERS Safety Report 9123378 (Version 1)
Quarter: 2013Q1

REPORT INFORMATION
  Report Type: Spontaneous
  Country: IT (occurrence: IT)
  Receive Date: 20130227
  Receipt Date: 20130227
  Transmission Date: 20140127
  Serious: Yes (Hospitalization)
  Sender: FDA-Public Use
  Company Number: IT-SANOFI-AVENTIS-2013SA015770

PATIENT
  Age: 64 Year
  Sex: Female

DRUGS (2)
  1. PLAVIX [Suspect]
     Indication: CORONARY ANGIOPLASTY
     Route: 048
     Dates: start: 20120503, end: 20121206
  2. ASA [Concomitant]

REACTIONS (1)
  - Arterial restenosis [Recovered/Resolved]
